FAERS Safety Report 16609283 (Version 1)
Quarter: 2019Q3

REPORT INFORMATION
  Report Type: Spontaneous
  Country: SG (occurrence: SG)
  Receive Date: 20190722
  Receipt Date: 20190722
  Transmission Date: 20191004
  Serious: Yes (Other)
  Sender: FDA-Public Use
  Company Number: SG-SA-2019SA192438

PATIENT
  Age: 67 Year
  Sex: Female
  Weight: 41.8 kg

DRUGS (6)
  1. OXALIPLATIN. [Suspect]
     Active Substance: OXALIPLATIN
     Indication: PANCREATIC CARCINOMA
     Dosage: 110 MG, QCY
     Route: 042
     Dates: start: 20190213, end: 20190213
  2. IRINOTECAN [Concomitant]
     Active Substance: IRINOTECAN
     Indication: PANCREATIC CARCINOMA
     Dosage: 165 MG, QCY
     Route: 042
     Dates: start: 20190130, end: 20190130
  3. DEXAMETHASONE. [Concomitant]
     Active Substance: DEXAMETHASONE
     Indication: PREMEDICATION
     Dosage: UNK UNK, UNK
     Route: 065
  4. GRANISETRON [Concomitant]
     Active Substance: GRANISETRON
     Indication: PREMEDICATION
     Dosage: 1 MG, QCY
     Route: 042
     Dates: start: 20190130, end: 20190130
  5. FLUOROURACIL. [Concomitant]
     Active Substance: FLUOROURACIL
     Indication: PANCREATIC CARCINOMA
     Dosage: 3100 MG, QCY
     Route: 065
     Dates: start: 20190130, end: 20190130
  6. LEUCOVORIN [CALCIUM FOLINATE] [Concomitant]
     Active Substance: LEUCOVORIN
     Indication: PANCREATIC CARCINOMA
     Dosage: UNK UNK, QCY
     Route: 042
     Dates: start: 20190130, end: 20190130

REACTIONS (5)
  - Throat tightness [Recovered/Resolved]
  - Stridor [Recovered/Resolved]
  - Dyspnoea [Recovered/Resolved]
  - Speech disorder [Recovered/Resolved]
  - Bronchospasm [Recovered/Resolved]

NARRATIVE: CASE EVENT DATE: 20190213
